FAERS Safety Report 23144182 (Version 2)
Quarter: 2023Q4

REPORT INFORMATION
  Report Type: Report from Study
  Country: CA (occurrence: CA)
  Receive Date: 20231103
  Receipt Date: 20231212
  Transmission Date: 20240110
  Serious: Yes (Other)
  Sender: FDA-Public Use
  Company Number: CA-SAMSUNG BIOEPIS-SB-2023-29018

PATIENT
  Age: 63 Year
  Sex: Female

DRUGS (2)
  1. RENFLEXIS [Suspect]
     Active Substance: INFLIXIMAB-ABDA
     Indication: Colitis ulcerative
     Route: 042
     Dates: start: 20230913
  2. CETUXIMAB [Suspect]
     Active Substance: CETUXIMAB
     Indication: Neoplasm malignant
     Dosage: UNKNOWN
     Route: 065

REACTIONS (7)
  - Rash pustular [Recovering/Resolving]
  - Pyrexia [Recovered/Resolved]
  - Headache [Recovered/Resolved]
  - Back pain [Recovered/Resolved]
  - Uterine contractions abnormal [Recovered/Resolved]
  - Colitis ulcerative [Unknown]
  - Product use issue [Unknown]

NARRATIVE: CASE EVENT DATE: 20230928
